FAERS Safety Report 11240286 (Version 1)
Quarter: 2015Q3

REPORT INFORMATION
  Report Type: Spontaneous
  Country: US (occurrence: None)
  Receive Date: 20150701
  Receipt Date: 20150701
  Transmission Date: 20151125
  Serious: Yes (Hospitalization)
  Sender: FDA-Public Use
  Company Number: None

PATIENT
  Age: 88 Year
  Sex: Male
  Weight: 128.2 kg

DRUGS (1)
  1. TERAZOSIN [Suspect]
     Active Substance: TERAZOSIN\TERAZOSIN HYDROCHLORIDE
     Dosage: 5 MG, AT BEDTIME, PO
     Route: 048
     Dates: start: 20060427, end: 20130815

REACTIONS (2)
  - Asthenia [None]
  - Hypotension [None]

NARRATIVE: CASE EVENT DATE: 20130815
